FAERS Safety Report 8803484 (Version 1)
Quarter: 2012Q4

REPORT INFORMATION
  Report Type: 
  Country: ES (occurrence: ES)
  Receive Date: 20120924
  Receipt Date: 20120924
  Transmission Date: 20130627
  Serious: Yes (Hospitalization)
  Sender: FDA-Public Use
  Company Number: ES-JNJFOC-20120907478

PATIENT
  Age: 59 Year
  Sex: Male

DRUGS (3)
  1. DAKTARIN [Suspect]
     Route: 002
  2. DAKTARIN [Suspect]
     Indication: PRODUCT USED FOR UNKNOWN INDICATION
     Route: 002
     Dates: start: 20120323, end: 20120331
  3. SINTROM [Suspect]
     Indication: PRODUCT USED FOR UNKNOWN INDICATION
     Route: 048
     Dates: start: 20050505

REACTIONS (2)
  - Retroperitoneal haematoma [Recovered/Resolved]
  - Haematuria [Recovered/Resolved]
